FAERS Safety Report 25918460 (Version 1)
Quarter: 2025Q4

REPORT INFORMATION
  Report Type: Spontaneous
  Country: US (occurrence: None)
  Receive Date: 20251010
  Receipt Date: 20251010
  Transmission Date: 20260118
  Serious: Yes (Disabling)
  Sender: FDA-CTU
  Company Number: None

PATIENT
  Age: 68 Year
  Sex: Male
  Weight: 61.02 kg

DRUGS (1)
  1. LEQEMBI [Suspect]
     Active Substance: LECANEMAB-IRMB
     Indication: Dementia Alzheimer^s type
     Dates: start: 20250408, end: 20251008

REACTIONS (4)
  - Weight decreased [None]
  - Gait disturbance [None]
  - Hypokinesia [None]
  - Hyponatraemia [None]

NARRATIVE: CASE EVENT DATE: 20250721
